FAERS Safety Report 7528888-6 (Version None)
Quarter: 2011Q2

REPORT INFORMATION
  Report Type: 
  Country: None (occurrence: None)
  Receive Date: 20110607
  Receipt Date: 20110525
  Transmission Date: 20111010
  Serious: Yes (Hospitalization)
  Sender: FDA-Public Use
  Company Number: IT-JNJFOC-20110600651

PATIENT
  Sex: Female

DRUGS (4)
  1. GLYBURIDE AND METFORMIN HCL [Concomitant]
  2. INDOMETHACIN SODIUM [Concomitant]
  3. TRAMADOL HCL [Suspect]
     Indication: METASTASES TO PERITONEUM
     Route: 048
     Dates: start: 20100206, end: 20100220
  4. OMEPRAZOLE [Concomitant]

REACTIONS (3)
  - SPEECH DISORDER [None]
  - VOMITING [None]
  - CONFUSIONAL STATE [None]
